FAERS Safety Report 9203607 (Version 1)
Quarter: 2013Q1

REPORT INFORMATION
  Report Type: Spontaneous
  Country: ES (occurrence: None)
  Receive Date: 20130329
  Receipt Date: 20130329
  Transmission Date: 20140127
  Serious: Yes (Hospitalization)
  Sender: FDA-Public Use
  Company Number: B0878359A

PATIENT
  Age: 54 Year
  Sex: Male

DRUGS (4)
  1. ZIDOVUDINE [Suspect]
     Indication: HIV INFECTION
     Dates: start: 201102
  2. LAMOTRIGINE (LAMOTRIGINE) [Suspect]
     Indication: EPILEPSY
     Dates: start: 201105
  3. LAMIVUDINE [Concomitant]
  4. ABACAVIR SULPHATE [Suspect]

REACTIONS (5)
  - Anaemia macrocytic [None]
  - Asthenia [None]
  - Weight decreased [None]
  - Dyspnoea exertional [None]
  - Haematotoxicity [None]
